FAERS Safety Report 7254180-3 (Version None)
Quarter: 2011Q1

REPORT INFORMATION
  Report Type: 
  Country: None (occurrence: None)
  Receive Date: 20110129
  Receipt Date: 20100308
  Transmission Date: 20110831
  Serious: No
  Sender: FDA-Public Use
  Company Number: US-ABBOTT-10P-163-0626217-00

PATIENT

DRUGS (2)
  1. HUMIRA [Suspect]
     Route: 058
     Dates: start: 20080101, end: 20080101
  2. HUMIRA [Suspect]
     Indication: CROHN'S DISEASE
     Dates: start: 20070101, end: 20080101

REACTIONS (4)
  - RASH PAPULAR [None]
  - SKIN DISCOLOURATION [None]
  - DRUG EFFECT DECREASED [None]
  - CROHN'S DISEASE [None]
